FAERS Safety Report 17777875 (Version 1)
Quarter: 2020Q2

REPORT INFORMATION
  Report Type: Spontaneous
  Country: US (occurrence: US)
  Receive Date: 20200513
  Receipt Date: 20200513
  Transmission Date: 20200714
  Serious: No
  Sender: FDA-Public Use
  Company Number: US-ACADIA PHARMACEUTICALS INC.-ACA-2020-PIM-001367

PATIENT
  Age: 84 Year
  Sex: Female

DRUGS (24)
  1. NUPLAZID [Suspect]
     Active Substance: PIMAVANSERIN TARTRATE
     Indication: PARKINSON^S DISEASE PSYCHOSIS
     Dosage: 34 MILLIGRAM, QD
     Route: 048
     Dates: start: 20200117
  2. NUPLAZID [Suspect]
     Active Substance: PIMAVANSERIN TARTRATE
     Indication: HALLUCINATION
  3. ENTACAPONE. [Concomitant]
     Active Substance: ENTACAPONE
     Indication: PARKINSON^S DISEASE
     Dosage: 300 MILLIGRAM, FOUR TIMES A DAY
     Route: 048
     Dates: start: 20200108
  4. METOPROLOL TARTRATE. [Concomitant]
     Active Substance: METOPROLOL TARTRATE
     Indication: HYPERTENSION
     Dosage: 25 MILLIGRAM, QD, AT  6 AM
     Route: 048
     Dates: start: 20200108
  5. ZOFRAN MELT [Concomitant]
     Indication: NAUSEA
     Dosage: 4 MILLIGRAM, 1 TAB PO EVERY 6 HOURS PRN
     Route: 048
     Dates: start: 20200127
  6. EXELON [Concomitant]
     Active Substance: RIVASTIGMINE TARTRATE
     Indication: PRODUCT USED FOR UNKNOWN INDICATION
     Dosage: PATCH 24 HOUR; 9.5 MG/24 HR; AMT: 1 PATCH, ONCE A DAY; 09,00 PM
     Route: 062
     Dates: start: 20200228
  7. NUPLAZID [Suspect]
     Active Substance: PIMAVANSERIN TARTRATE
     Indication: DELUSION
  8. PRESERVISION AREDS [Concomitant]
     Active Substance: MINERALS\VITAMINS
     Indication: EYE DISORDER
     Dosage: ; 250-200.40-1 MG-UNIT-MG-MG; QD, 06:00 AM
     Route: 048
     Dates: start: 20200108
  9. SINEMET [Concomitant]
     Active Substance: CARBIDOPA\LEVODOPA
     Dosage: 25-100 MG, 2 TABS AT BEDTIME; 09:00 PM
     Route: 048
     Dates: start: 20200110
  10. ACETAMINOPHEN. [Concomitant]
     Active Substance: ACETAMINOPHEN
     Indication: PRODUCT USED FOR UNKNOWN INDICATION
     Dosage: 325 MILLIGRAM, EVERY 4 HOURS
     Route: 048
     Dates: start: 20200212
  11. AMANTADINE HYDROCHLORIDE. [Concomitant]
     Active Substance: AMANTADINE HYDROCHLORIDE
     Indication: PRODUCT USED FOR UNKNOWN INDICATION
     Dosage: 100 MILLIGRAM, BID
     Route: 048
     Dates: start: 20200108
  12. ASPIRIN (E.C.) [Concomitant]
     Active Substance: ASPIRIN
     Indication: HIP FRACTURE
     Dosage: 81 MILLIGRAM, QD, AT 6 AM
     Route: 048
     Dates: start: 20200108
  13. TRAMADOL. [Concomitant]
     Active Substance: TRAMADOL
     Indication: PAIN
     Dosage: 2 TABS PO PRN EVERY 6 HOURS
     Route: 048
     Dates: start: 20200109
  14. FAMOTIDINE. [Concomitant]
     Active Substance: FAMOTIDINE
     Indication: GASTROOESOPHAGEAL REFLUX DISEASE
     Dosage: 40 MILLIGRAM, AT BEDTIME 9 PM
     Route: 048
     Dates: start: 20200108
  15. SINEMET [Concomitant]
     Active Substance: CARBIDOPA\LEVODOPA
     Dosage: 25-100 MG, 2.5 TABS PO BEFORE DINNER DAILY, ONCE A DAY; 04:00 PM
     Route: 048
     Dates: start: 20200109
  16. MIRALAX [Concomitant]
     Active Substance: POLYETHYLENE GLYCOL 3350
     Indication: CONSTIPATION
     Dosage: 17 GRAM/DOSE, ONCE A DAY; 06:00 AM
     Route: 048
     Dates: start: 20200108
  17. MELATONIN [Concomitant]
     Active Substance: MELATONIN
     Indication: PRODUCT USED FOR UNKNOWN INDICATION
     Dosage: 5 MILLIGRAM, QD
     Route: 048
     Dates: start: 20200129
  18. ROPINIROLE. [Concomitant]
     Active Substance: ROPINIROLE
     Indication: PRODUCT USED FOR UNKNOWN INDICATION
     Dosage: 4 MILLIGRAM, QD
     Route: 048
     Dates: start: 20200218
  19. SINEMET [Concomitant]
     Active Substance: CARBIDOPA\LEVODOPA
     Indication: PARKINSON^S DISEASE
     Dosage: : 2 PILL PO BEFORE BREAKFAST AND BEFORE LUNCH DAILY; TWICE A DAY; 06:00 AM, 11:00 AM
     Route: 048
     Dates: start: 20200109
  20. CITALOPRAM [Concomitant]
     Active Substance: CITALOPRAM HYDROBROMIDE
     Indication: DEPRESSION
     Dosage: 20 MILLIGRAM, QD, AT 6 AM
     Route: 048
     Dates: start: 20200108
  21. COLACE 2 IN 1 [Concomitant]
     Active Substance: DOCUSATE SODIUM\SENNOSIDES
     Indication: CONSTIPATION
     Dosage: 8.6-50 MG BID
     Route: 048
     Dates: start: 20200108
  22. POTASSIUM CHLORIDE. [Concomitant]
     Active Substance: POTASSIUM CHLORIDE
     Indication: SUPPLEMENTATION THERAPY
     Dosage: 10 MEQ; ONCE A DAY; 06:00 AM
     Route: 048
     Dates: start: 20200108
  23. VITAMIN C ACID [Concomitant]
     Active Substance: ASCORBIC ACID
     Indication: SUPPLEMENTATION THERAPY
     Dosage: 1000 MILLIGRAM, QD, 06:00 AM
     Route: 048
     Dates: start: 20200108
  24. VITAMIN D3 [Concomitant]
     Active Substance: CHOLECALCIFEROL
     Indication: PRODUCT USED FOR UNKNOWN INDICATION
     Dosage: 125 MCG, ORAL ONCE A DAY; 06:00 AM
     Route: 048
     Dates: start: 20200109

REACTIONS (9)
  - Sleep disorder [Unknown]
  - Aggression [Unknown]
  - Depressed mood [Unknown]
  - Hallucination [Not Recovered/Not Resolved]
  - Fall [Unknown]
  - Abnormal behaviour [Unknown]
  - Balance disorder [Not Recovered/Not Resolved]
  - Hallucinations, mixed [Not Recovered/Not Resolved]
  - Therapeutic product effect decreased [Unknown]

NARRATIVE: CASE EVENT DATE: 2020
